FAERS Safety Report 8648580 (Version 2)
Quarter: 2012Q4

REPORT INFORMATION
  Report Type: 
  Country: FI (occurrence: FI)
  Receive Date: 20120703
  Receipt Date: 20121012
  Transmission Date: 20130627
  Serious: Yes (Hospitalization)
  Sender: FDA-Public Use
  Company Number: FI-GLAXOSMITHKLINE-B0811491A

PATIENT
  Age: 33 Year
  Sex: Male

DRUGS (6)
  1. ZINACEF [Suspect]
     Indication: URINARY TRACT INFECTION
     Route: 042
     Dates: start: 20120523, end: 20120528
  2. KETORIN [Suspect]
     Indication: CALCULUS URINARY
     Route: 042
     Dates: start: 20120520, end: 20120520
  3. ATACAND [Concomitant]
     Indication: HYPERTENSION
     Route: 048
     Dates: start: 2007, end: 2012
  4. CEFUROXIME [Concomitant]
  5. METRONIDAZOLE [Concomitant]
  6. PANADOL [Concomitant]

REACTIONS (20)
  - Hepatic necrosis [Recovering/Resolving]
  - Pleural effusion [Recovering/Resolving]
  - Ascites [Recovering/Resolving]
  - Alanine aminotransferase increased [Recovering/Resolving]
  - Liver injury [Recovering/Resolving]
  - Autoimmune hepatitis [Recovering/Resolving]
  - Juvenile idiopathic arthritis [Recovering/Resolving]
  - General physical health deterioration [Recovering/Resolving]
  - Abdominal pain lower [Recovering/Resolving]
  - Hypotension [Recovering/Resolving]
  - Retching [Recovering/Resolving]
  - Feeling abnormal [Recovering/Resolving]
  - Splenomegaly [Recovering/Resolving]
  - Intestinal mucosal hypertrophy [Recovering/Resolving]
  - Abdominal pain upper [Recovering/Resolving]
  - C-reactive protein increased [Recovering/Resolving]
  - Duodenitis [Recovering/Resolving]
  - Pyrexia [Recovering/Resolving]
  - Blood glucose increased [Recovering/Resolving]
  - Hepatic function abnormal [Recovering/Resolving]
